FAERS Safety Report 8543317-1 (Version None)
Quarter: 2012Q3

REPORT INFORMATION
  Report Type: 
  Country: None (occurrence: None)
  Receive Date: 20120719
  Receipt Date: 20120719
  Transmission Date: 20120928
  Serious: Yes (Other)
  Sender: FDA-Public Use
  Company Number: None

PATIENT
  Age: 42 Year
  Sex: Female
  Weight: 63.5036 kg

DRUGS (1)
  1. CIPROFLOXACIN HCL [Suspect]
     Indication: URINARY TRACT INFECTION
     Dosage: 250 MG 2 A DAY PO 2 TIMES
     Route: 048
     Dates: start: 20120625, end: 20120625

REACTIONS (24)
  - NERVOUS SYSTEM DISORDER [None]
  - DYSSTASIA [None]
  - CONCUSSION [None]
  - LETHARGY [None]
  - PANIC ATTACK [None]
  - RASH [None]
  - FATIGUE [None]
  - DYSPNOEA [None]
  - URINARY TRACT INFECTION [None]
  - FEELING ABNORMAL [None]
  - DEPRESSION [None]
  - PAIN IN EXTREMITY [None]
  - ANXIETY [None]
  - MUSCLE TWITCHING [None]
  - ASTHENIA [None]
  - POISONING [None]
  - PARAESTHESIA [None]
  - ABASIA [None]
  - NAUSEA [None]
  - PERFORMANCE STATUS DECREASED [None]
  - BURNING SENSATION [None]
  - VISUAL IMPAIRMENT [None]
  - DISORIENTATION [None]
  - OEDEMA PERIPHERAL [None]
